FAERS Safety Report 5493051-X (Version None)
Quarter: 2007Q4

REPORT INFORMATION
  Report Type: 
  Country: None (occurrence: None)
  Receive Date: 20071017
  Receipt Date: 20071010
  Transmission Date: 20080405
  Serious: Yes (Other)
  Sender: FDA-Public Use
  Company Number: CHPA2007US10672

PATIENT
  Sex: Female

DRUGS (1)
  1. TRIAMINIC COLD + ALLERGY ORANGE (NCH) (CHLORPHENIRAMINE MALEATE, PSEUD [Suspect]
     Dates: start: 20071010, end: 20071010

REACTIONS (1)
  - TREMOR [None]
